FAERS Safety Report 19123608 (Version 4)
Quarter: 2022Q2

REPORT INFORMATION
  Report Type: Spontaneous
  Country: US (occurrence: US)
  Receive Date: 20210412
  Receipt Date: 20220613
  Transmission Date: 20220721
  Serious: No
  Sender: FDA-Public Use
  Company Number: US-PFIZER INC-2021273418

PATIENT
  Age: 81 Year
  Sex: Male

DRUGS (1)
  1. XELJANZ XR [Suspect]
     Active Substance: TOFACITINIB CITRATE
     Dosage: 11 MG, UNK

REACTIONS (5)
  - Hypoacusis [Unknown]
  - Sleep disorder [Unknown]
  - Gait disturbance [Unknown]
  - Muscular weakness [Unknown]
  - Pain [Unknown]
